FAERS Safety Report 13028689 (Version 2)
Quarter: 2016Q4

REPORT INFORMATION
  Report Type: Spontaneous
  Country: US (occurrence: US)
  Receive Date: 20161214
  Receipt Date: 20161227
  Transmission Date: 20170207
  Serious: Yes (Death)
  Sender: FDA-Public Use
  Company Number: US-CELGENEUS-USA-2016123498

PATIENT
  Age: 85 Year
  Sex: Female

DRUGS (1)
  1. REVLIMID [Suspect]
     Active Substance: LENALIDOMIDE
     Indication: ACUTE LYMPHOCYTIC LEUKAEMIA
     Dosage: 5 MG
     Route: 048
     Dates: start: 201610, end: 2016

REACTIONS (2)
  - Myelodysplastic syndrome [Fatal]
  - Pruritus [Unknown]

NARRATIVE: CASE EVENT DATE: 201610
